FAERS Safety Report 21913086 (Version 1)
Quarter: 2023Q1

REPORT INFORMATION
  Report Type: Spontaneous
  Country: US (occurrence: US)
  Receive Date: 20230125
  Receipt Date: 20230125
  Transmission Date: 20230417
  Serious: No
  Sender: FDA-Public Use
  Company Number: US-ALLERGAN-2206578US

PATIENT
  Sex: Female

DRUGS (2)
  1. BOTOX [Suspect]
     Active Substance: ONABOTULINUMTOXINA
     Indication: Product used for unknown indication
     Dosage: UNK UNK, SINGLE
  2. JANSSEN COVID-19 VACCINE [Suspect]
     Active Substance: AD26.COV2.S
     Indication: COVID-19 immunisation
     Dosage: UNK
     Dates: start: 20210721, end: 20210721

REACTIONS (7)
  - Swelling face [Unknown]
  - Joint swelling [Unknown]
  - Fatigue [Unknown]
  - Scar pain [Unknown]
  - Dizziness [Unknown]
  - Vision blurred [Unknown]
  - Migraine [Unknown]
